FAERS Safety Report 24643844 (Version 1)
Quarter: 2024Q4

REPORT INFORMATION
  Report Type: Report from Study
  Country: US (occurrence: US)
  Receive Date: 20241120
  Receipt Date: 20241120
  Transmission Date: 20250115
  Serious: Yes (Hospitalization)
  Sender: MYLAN
  Company Number: US-MYLANLABS-2024M1103480

PATIENT
  Age: 15 Year
  Sex: Male

DRUGS (4)
  1. LEVETIRACETAM [Suspect]
     Active Substance: LEVETIRACETAM
     Indication: Status epilepticus
     Dosage: UNK
     Route: 042
  2. LORAZEPAM [Suspect]
     Active Substance: LORAZEPAM
     Indication: Status epilepticus
     Dosage: UNK, 3X (THREE TIMES)
     Route: 042
  3. LACOSAMIDE [Suspect]
     Active Substance: LACOSAMIDE
     Indication: Status epilepticus
     Dosage: UNK
     Route: 042
  4. KETAMINE [Concomitant]
     Active Substance: KETAMINE
     Indication: Status epilepticus
     Dosage: 1.5 MILLIGRAM/KILOGRAM, QD,FOR 6?DAYS, ENTERAL
     Route: 065

REACTIONS (1)
  - Drug ineffective [Unknown]
